FAERS Safety Report 7677178-X (Version None)
Quarter: 2011Q3

REPORT INFORMATION
  Report Type: 
  Country: None (occurrence: None)
  Receive Date: 20110811
  Receipt Date: 20110728
  Transmission Date: 20111222
  Serious: Yes (Other)
  Sender: FDA-Public Use
  Company Number: US-ELI_LILLY_AND_COMPANY-US201107001486

PATIENT
  Sex: Male
  Weight: 74.83 kg

DRUGS (1)
  1. FORTEO [Suspect]
     Dosage: UNK UNK, QD
     Dates: start: 20100330

REACTIONS (1)
  - BASAL CELL CARCINOMA [None]
